FAERS Safety Report 6253728-5 (Version None)
Quarter: 2009Q2

REPORT INFORMATION
  Report Type: 
  Country: None (occurrence: None)
  Receive Date: 20090630
  Receipt Date: 20090615
  Transmission Date: 20091009
  Serious: Yes (Death)
  Sender: FDA-Public Use
  Company Number: APP200900329

PATIENT
  Age: 68 Year
  Sex: Male
  Weight: 60.3 kg

DRUGS (2)
  1. PROTAMINE SULFATE [Suspect]
     Indication: HEPARIN NEUTRALISATION THERAPY
     Dosage: 50 MG, TOTAL DOSE, INTRAVENOUS
     Route: 042
     Dates: start: 20090605, end: 20090605
  2. HEPARIN SODIUM INJECTION [Concomitant]

REACTIONS (3)
  - BRADYCARDIA [None]
  - CARDIAC ARREST [None]
  - HYPOTENSION [None]
